FAERS Safety Report 12162914 (Version 3)
Quarter: 2016Q2

REPORT INFORMATION
  Report Type: Report from Study
  Country: JP (occurrence: JP)
  Receive Date: 20160309
  Receipt Date: 20160527
  Transmission Date: 20160815
  Serious: Yes (Hospitalization)
  Sender: FDA-Public Use
  Company Number: JP-OTSUKA-2015_014989

PATIENT
  Age: 45 Year
  Sex: Male
  Weight: 73.4 kg

DRUGS (11)
  1. AMOXICILLIN. [Concomitant]
     Active Substance: AMOXICILLIN
     Indication: PRODUCT USED FOR UNKNOWN INDICATION
     Dosage: 500 MG, DAILY DOSE
     Route: 048
     Dates: start: 20151117, end: 20151207
  2. TOLVAPTAN [Suspect]
     Active Substance: TOLVAPTAN
     Dosage: 45 MG, DAILY DOSE (DIVIDED 2 DOSES)
     Route: 048
     Dates: start: 20160105
  3. FEBURIC [Concomitant]
     Active Substance: FEBUXOSTAT
     Indication: PRODUCT USED FOR UNKNOWN INDICATION
     Dosage: 20 MG, DAILY DOSE
     Route: 048
  4. AIMIX COMBINATION TABLETS LD [Concomitant]
     Indication: PRODUCT USED FOR UNKNOWN INDICATION
     Dosage: 1 DF, DAILY DOSE
     Route: 048
     Dates: start: 20151112
  5. TOLVAPTAN [Suspect]
     Active Substance: TOLVAPTAN
     Indication: CONGENITAL CYSTIC KIDNEY DISEASE
     Dosage: 15 MG, QD
     Route: 048
     Dates: start: 20150813, end: 20150813
  6. TOLVAPTAN [Suspect]
     Active Substance: TOLVAPTAN
     Dosage: 45 MG, DAILY DOSE (DIVIDED 2 DOSES)
     Route: 048
     Dates: start: 20150816, end: 20151023
  7. ADALAT [Concomitant]
     Active Substance: NIFEDIPINE
     Indication: PRODUCT USED FOR UNKNOWN INDICATION
     Dosage: 20 MG, DAILY DOSE
     Route: 048
  8. TOLVAPTAN [Suspect]
     Active Substance: TOLVAPTAN
     Dosage: 60 MG, DAILY DOSE (DIVIDED 2 DOSES)
     Route: 048
     Dates: start: 20150814, end: 20150815
  9. PIPERACILLIN [Concomitant]
     Active Substance: PIPERACILLIN
     Indication: PRODUCT USED FOR UNKNOWN INDICATION
     Dosage: 4 G, DAILY DOSE
     Route: 042
     Dates: start: 20151024, end: 20151107
  10. PIPERACILLIN [Concomitant]
     Active Substance: PIPERACILLIN
     Dosage: 2 G, DAILY DOSE
     Route: 042
     Dates: start: 20151112, end: 20151116
  11. AIMIX COMBINATION TABLETS HD [Concomitant]
     Indication: PRODUCT USED FOR UNKNOWN INDICATION
     Dosage: 1 DF, DAILY DOSE
     Route: 048
     Dates: end: 20151111

REACTIONS (10)
  - Haematuria [Recovered/Resolved]
  - Renal cyst haemorrhage [Unknown]
  - Flank pain [Unknown]
  - Renal cyst infection [Recovered/Resolved]
  - Haematuria [Recovered/Resolved]
  - Anaemia [Recovered/Resolved]
  - Renal cyst haemorrhage [Unknown]
  - Renal cyst infection [Recovered/Resolved]
  - Haematuria [Recovered/Resolved]
  - Pyrexia [Unknown]

NARRATIVE: CASE EVENT DATE: 20150815
